FAERS Safety Report 9631659 (Version 2)
Quarter: 2013Q4

REPORT INFORMATION
  Report Type: Spontaneous
  Country: GB (occurrence: None)
  Receive Date: 20131016
  Receipt Date: 20131029
  Transmission Date: 20140711
  Serious: Yes (Other)
  Sender: FDA-Public Use
  Company Number: AUR-APL-2013-08420

PATIENT
  Age: 60 Year
  Sex: Female

DRUGS (10)
  1. RIBAVIRIN [Suspect]
     Indication: HEPATITIS C
     Route: 048
     Dates: start: 20121213
  2. PEGINTERFERON ALFA-2B [Suspect]
     Indication: HEPATITIS C
     Route: 058
     Dates: start: 20121213
  3. GLICLAZIDE [Concomitant]
  4. INSULIN (INSULIN) [Concomitant]
  5. LORATIDINE [Concomitant]
  6. METFORMIN (METFORMIN) [Concomitant]
  7. TELAPREVIR (TELAPREVIR) [Suspect]
     Indication: HEPATITIS C
     Route: 048
     Dates: start: 20121213
  8. RAMIPRIL (RAMIPRIL) [Concomitant]
  9. TERBUTALINE [Concomitant]
  10. AMITRIPTYLINE (AMITRIPTYLINE) [Concomitant]

REACTIONS (10)
  - Pruritus [None]
  - Anaemia [None]
  - Platelet count decreased [None]
  - Nausea [None]
  - Diarrhoea [None]
  - Dizziness [None]
  - Vomiting [None]
  - Chills [None]
  - Pain [None]
  - Vomiting [None]
